FAERS Safety Report 10599227 (Version 5)
Quarter: 2015Q1

REPORT INFORMATION
  Report Type: Spontaneous
  Country: US (occurrence: US)
  Receive Date: 20141121
  Receipt Date: 20150305
  Transmission Date: 20150720
  Serious: Yes (Hospitalization, Other)
  Sender: FDA-Public Use
  Company Number: US-UNITED THERAPEUTICS-UNT-2014-009361

PATIENT
  Age: 51 Year
  Sex: Female
  Weight: 135.1 kg

DRUGS (5)
  1. REMODULIN [Suspect]
     Active Substance: TREPROSTINIL
     Indication: PULMONARY ARTERIAL HYPERTENSION
     Dosage: 0.002 ?G/KG/MIN, CONTINUING
     Route: 058
     Dates: start: 20141008
  2. REMODULIN [Suspect]
     Active Substance: TREPROSTINIL
     Dosage: 0.004 ?G/KG/ MIN, CONTINUING
     Route: 058
     Dates: start: 20141010
  3. REMODULIN [Suspect]
     Active Substance: TREPROSTINIL
     Dosage: 0.011 ?G/KG, CONTINUING
     Route: 058
     Dates: start: 20141010
  4. REMODULIN [Suspect]
     Active Substance: TREPROSTINIL
     Dosage: 0.002 ?G/KG, CONTINUING
     Route: 058
     Dates: start: 20141010
  5. ASPIRIN. [Concomitant]
     Active Substance: ASPIRIN
     Indication: PRODUCT USED FOR UNKNOWN INDICATION

REACTIONS (19)
  - Flushing [Unknown]
  - Diarrhoea [Unknown]
  - Infection [Unknown]
  - Fatigue [Unknown]
  - Nausea [Unknown]
  - Abdominal injury [Unknown]
  - Pulmonary arterial pressure decreased [Unknown]
  - Dyspnoea [Unknown]
  - Pain in extremity [Unknown]
  - Infusion site erythema [Unknown]
  - Groin infection [Unknown]
  - Retching [Unknown]
  - Headache [Unknown]
  - Wound [Unknown]
  - Blood pressure decreased [Unknown]
  - Peripheral coldness [Unknown]
  - Right ventricular failure [Unknown]
  - Infusion site pain [Unknown]
  - Hypotension [Unknown]

NARRATIVE: CASE EVENT DATE: 2014
